FAERS Safety Report 12801667 (Version 5)
Quarter: 2016Q4

REPORT INFORMATION
  Report Type: Spontaneous
  Country: US (occurrence: US)
  Receive Date: 20161003
  Receipt Date: 20161202
  Transmission Date: 20170207
  Serious: No
  Sender: FDA-Public Use
  Company Number: US-PFIZER INC-2016457014

PATIENT
  Age: 73 Year
  Sex: Male
  Weight: 93 kg

DRUGS (15)
  1. VALSARTAN. [Concomitant]
     Active Substance: VALSARTAN
  2. BABY ASPIRIN [Concomitant]
     Active Substance: ASPIRIN
  3. PROAIR HFA [Concomitant]
     Active Substance: ALBUTEROL SULFATE
  4. CIALIS [Concomitant]
     Active Substance: TADALAFIL
  5. SUTENT [Suspect]
     Active Substance: SUNITINIB MALATE
     Indication: METASTATIC RENAL CELL CARCINOMA
     Dosage: 37.5 MG, CYCLIC, (DAILY 28 DAYS ON/14 DAYS OFF, ALSO REPORTED AS 4 WEEKS ON/2 WEEKS OFF)
     Dates: start: 20160820
  6. NEXIUM [Concomitant]
     Active Substance: ESOMEPRAZOLE MAGNESIUM
  7. COREG [Concomitant]
     Active Substance: CARVEDILOL
  8. ADVAIR HFA [Concomitant]
     Active Substance: FLUTICASONE PROPIONATE\SALMETEROL XINAFOATE
  9. TIMOLOL. [Concomitant]
     Active Substance: TIMOLOL
  10. AMLODIPINE [Concomitant]
     Active Substance: AMLODIPINE BESYLATE
  11. SPIRIVA [Concomitant]
     Active Substance: TIOTROPIUM BROMIDE MONOHYDRATE
  12. VITAMIN B [Concomitant]
     Active Substance: VITAMIN B
  13. SUTENT [Suspect]
     Active Substance: SUNITINIB MALATE
     Dosage: 50 MG, CYCLIC (28 DAYS ON/14 DAYS)
     Dates: start: 20161001
  14. LIPITOR [Concomitant]
     Active Substance: ATORVASTATIN CALCIUM
  15. REFRESH [Concomitant]
     Active Substance: UNSPECIFIED INGREDIENT

REACTIONS (16)
  - Cough [Unknown]
  - Musculoskeletal pain [Unknown]
  - Hyperkeratosis [Unknown]
  - Decreased appetite [Unknown]
  - Muscle spasms [Unknown]
  - Fatigue [Unknown]
  - Gait disturbance [Unknown]
  - Diarrhoea [Unknown]
  - Constipation [Unknown]
  - Pain in extremity [Unknown]
  - Pleural effusion [Recovering/Resolving]
  - Peripheral swelling [Unknown]
  - Blister [Unknown]
  - Back pain [Unknown]
  - Dyspnoea [Unknown]
  - Drug dose omission [Unknown]
